FAERS Safety Report 8796183 (Version 4)
Quarter: 2013Q1

REPORT INFORMATION
  Report Type: Report from Study
  Country: SE (occurrence: SE)
  Receive Date: 20120919
  Receipt Date: 20130305
  Transmission Date: 20140127
  Serious: Yes (Death, Life-Threatening)
  Sender: FDA-Public Use
  Company Number: SE-BRISTOL-MYERS SQUIBB COMPANY-16944886

PATIENT
  Age: 69 Year
  Sex: Male

DRUGS (3)
  1. ORENCIA FOR INJ 250 MG/VIAL [Suspect]
     Indication: POLYARTHRITIS
     Route: 042
     Dates: start: 20091221, end: 20111015
  2. PREDNISOLONE [Suspect]
  3. METHOTREXATE [Suspect]

REACTIONS (2)
  - Myelodysplastic syndrome [Fatal]
  - Sepsis [Fatal]
